FAERS Safety Report 4472975-6 (Version None)
Quarter: 2004Q4

REPORT INFORMATION
  Report Type: 
  Country: None (occurrence: None)
  Receive Date: 20041011
  Receipt Date: 20041011
  Transmission Date: 20050328
  Serious: Yes (Hospitalization)
  Sender: FDA-Public Use
  Company Number: None

PATIENT
  Age: 60 Year
  Sex: Female
  Weight: 92.0802 kg

DRUGS (5)
  1. VINORELBINE 45 MG IV PUSH OVER 6-10 MIN FOLLOWED BY 500 ML NS [Suspect]
     Indication: BREAST CANCER
     Dosage: 45 MG IV PUSH
     Route: 042
     Dates: start: 20040922
  2. TAXOTERE [Suspect]
     Indication: BREAST CANCER
     Dosage: 90 MG IN 250 ML NS
     Dates: start: 20040922
  3. ALOXI [Concomitant]
  4. NEULASTA [Concomitant]
  5. LEVAQUIN [Concomitant]

REACTIONS (1)
  - FEBRILE NEUTROPENIA [None]
